FAERS Safety Report 15093425 (Version 2)
Quarter: 2018Q3

REPORT INFORMATION
  Report Type: Report from Study
  Country: FR (occurrence: FR)
  Receive Date: 20180629
  Receipt Date: 20180704
  Transmission Date: 20181010
  Serious: Yes (Hospitalization)
  Sender: FDA-Public Use
  Company Number: PHHO2016FR019175

PATIENT
  Age: 66 Year
  Sex: Male

DRUGS (10)
  1. NO TREATMENT RECEIVED [Suspect]
     Active Substance: UNSPECIFIED INGREDIENT
     Indication: RENAL TRANSPLANT
     Dosage: 350 MG, BID
     Route: 065
     Dates: start: 20150911
  2. NEORAL [Suspect]
     Active Substance: CYCLOSPORINE
     Dosage: 25 MG, BID
     Route: 065
     Dates: start: 201511
  3. MYFORTIC [Suspect]
     Active Substance: MYCOPHENOLATE SODIUM
     Indication: RENAL TRANSPLANT
     Dosage: 1080 MG, BID
     Route: 065
     Dates: start: 20150910, end: 20151011
  4. NEORAL [Suspect]
     Active Substance: CYCLOSPORINE
     Dosage: 310 MG, QD
     Route: 065
     Dates: start: 20150928, end: 201511
  5. NO TREATMENT RECEIVED [Suspect]
     Active Substance: UNSPECIFIED INGREDIENT
     Dosage: 250 MG, BID
     Route: 065
     Dates: start: 20160115
  6. MYFORTIC [Suspect]
     Active Substance: MYCOPHENOLATE SODIUM
     Dosage: 720 MG, BID
     Route: 065
     Dates: start: 20151012
  7. NO TREATMENT RECEIVED [Suspect]
     Active Substance: UNSPECIFIED INGREDIENT
     Dosage: 25 MG, BID
     Route: 065
     Dates: start: 201511
  8. NEORAL [Suspect]
     Active Substance: CYCLOSPORINE
     Indication: RENAL TRANSPLANT
     Dosage: 350 MG, BID
     Route: 065
     Dates: start: 20150911
  9. NEORAL [Suspect]
     Active Substance: CYCLOSPORINE
     Dosage: 250 MG, BID
     Route: 065
     Dates: start: 20160115
  10. NO TREATMENT RECEIVED [Suspect]
     Active Substance: UNSPECIFIED INGREDIENT
     Dosage: 310 MG, QD
     Route: 065
     Dates: start: 20150928, end: 201511

REACTIONS (7)
  - Overdose [Unknown]
  - Intestinal ischaemia [Recovered/Resolved with Sequelae]
  - Renal impairment [Recovered/Resolved]
  - Cytomegalovirus infection [Not Recovered/Not Resolved]
  - Peripheral ischaemia [Recovered/Resolved with Sequelae]
  - Kidney transplant rejection [Not Recovered/Not Resolved]
  - Acute kidney injury [Recovered/Resolved with Sequelae]

NARRATIVE: CASE EVENT DATE: 20151029
